FAERS Safety Report 9888968 (Version 1)
Quarter: 2014Q1

REPORT INFORMATION
  Report Type: Spontaneous
  Country: US (occurrence: None)
  Receive Date: 20140207
  Receipt Date: 20140207
  Transmission Date: 20141002
  Serious: Yes (Death)
  Sender: FDA-Public Use
  Company Number: SYM-2014-16790

PATIENT
  Age: 5 Month
  Sex: Male

DRUGS (1)
  1. CALCIUM [Suspect]
     Indication: PRODUCT USED FOR UNKNOWN INDICATION
     Dosage: PARENTERAL
     Route: 051

REACTIONS (13)
  - Poisoning [None]
  - Incorrect dose administered [None]
  - Medication error [None]
  - Hypercalcaemia [None]
  - Bradycardia [None]
  - Hypoxia [None]
  - Atrioventricular dissociation [None]
  - Ventricular fibrillation [None]
  - Splenic infarction [None]
  - Subdural haemorrhage [None]
  - Cerebral haematoma [None]
  - Thalamic infarction [None]
  - Cerebral infarction [None]
